FAERS Safety Report 10583305 (Version 1)
Quarter: 2014Q4

REPORT INFORMATION
  Report Type: Report from Study
  Country: US (occurrence: US)
  Receive Date: 20141114
  Receipt Date: 20141114
  Transmission Date: 20150529
  Serious: Yes (Other)
  Sender: FDA-Public Use
  Company Number: US-AMGEN-USASL2014087292

PATIENT
  Age: 49 Year
  Sex: Male
  Weight: 104.76 kg

DRUGS (1)
  1. ENBREL [Suspect]
     Active Substance: ETANERCEPT
     Indication: RHEUMATOID ARTHRITIS
     Dosage: 50 MG, QWK
     Route: 058
     Dates: start: 201301

REACTIONS (9)
  - Pancreatitis [Unknown]
  - Intervertebral disc disorder [Unknown]
  - Blood cholesterol increased [Unknown]
  - Fall [Unknown]
  - Chronic obstructive pulmonary disease [Unknown]
  - Arthralgia [Unknown]
  - Diabetes mellitus [Unknown]
  - Hypertension [Unknown]
  - Nail discolouration [Unknown]
